FAERS Safety Report 4443242-1 (Version None)
Quarter: 2004Q3

REPORT INFORMATION
  Report Type: 
  Country: None (occurrence: None)
  Receive Date: 20040903
  Receipt Date: 20040903
  Transmission Date: 20050211
  Serious: No
  Sender: FDA-Public Use
  Company Number: None

PATIENT
  Age: 83 Year
  Sex: Female
  Weight: 66 kg

DRUGS (1)
  1. DROTRECOGIN [Suspect]
     Indication: SEPSIS
     Dosage: WEIGHT BASED   15 MG Q 9   INTRAVENOUS
     Route: 042
     Dates: start: 20040827, end: 20040829

REACTIONS (1)
  - HAEMORRHAGE [None]
